FAERS Safety Report 9642525 (Version 1)
Quarter: 2013Q4

REPORT INFORMATION
  Report Type: Spontaneous
  Country: BR (occurrence: BR)
  Receive Date: 20131024
  Receipt Date: 20131024
  Transmission Date: 20140711
  Serious: Yes (Hospitalization)
  Sender: FDA-Public Use
  Company Number: BR-AMGEN-BRASP2013075096

PATIENT
  Age: 73 Year
  Sex: Female
  Weight: 58 kg

DRUGS (6)
  1. PROLIA [Suspect]
     Indication: OSTEOPOROSIS
     Dosage: 60 MG, Q6MO
     Route: 065
     Dates: start: 20130430
  2. PROLIA [Suspect]
     Indication: FIBROMYALGIA
  3. ACICLOVIR [Suspect]
     Indication: PRODUCT USED FOR UNKNOWN INDICATION
     Dosage: 200 MG, QD
     Route: 048
     Dates: start: 2010
  4. OSCAL 500 + D [Suspect]
     Indication: PRODUCT USED FOR UNKNOWN INDICATION
     Dosage: 1 DF, BID
     Route: 048
     Dates: start: 2003
  5. ATENOLOL [Suspect]
     Indication: PRODUCT USED FOR UNKNOWN INDICATION
     Dosage: 25 MG, QD
     Route: 048
     Dates: start: 2011
  6. CELEBRA [Suspect]
     Indication: NECK PAIN
     Dosage: 200MG TWICE PER DAY
     Route: 065

REACTIONS (4)
  - Road traffic accident [Unknown]
  - Wrist surgery [Unknown]
  - Limb immobilisation [Not Recovered/Not Resolved]
  - Wrist fracture [Recovered/Resolved]
